FAERS Safety Report 12800899 (Version 3)
Quarter: 2020Q3

REPORT INFORMATION
  Report Type: Report from Study
  Country: AU (occurrence: AU)
  Receive Date: 20161002
  Receipt Date: 20200822
  Transmission Date: 20201102
  Serious: Yes (Life-Threatening, Hospitalization, Disabling, Other)
  Sender: FDA-Public Use
  Company Number: PHHY2016AU134993

PATIENT
  Age: 37 Year
  Sex: Female
  Weight: 50 kg

DRUGS (8)
  1. GILENYA [Suspect]
     Active Substance: FINGOLIMOD HYDROCHLORIDE
     Dosage: 0.5 MG, QD
     Route: 048
     Dates: start: 20160917, end: 20171213
  2. GILENYA [Suspect]
     Active Substance: FINGOLIMOD HYDROCHLORIDE
     Dosage: 0.5 MG, QD
     Route: 048
     Dates: start: 20171216, end: 20191121
  3. GILENYA [Suspect]
     Active Substance: FINGOLIMOD HYDROCHLORIDE
     Indication: MULTIPLE SCLEROSIS
     Dosage: 0.5 MG, QD
     Route: 048
     Dates: start: 20140829, end: 20160915
  4. MIRENA [Concomitant]
     Active Substance: LEVONORGESTREL
     Indication: PRODUCT USED FOR UNKNOWN INDICATION
     Dosage: INSERTION
     Route: 065
     Dates: start: 201302
  5. CHOLECALCIFEROL [Concomitant]
     Active Substance: CHOLECALCIFEROL
     Indication: PRODUCT USED FOR UNKNOWN INDICATION
     Route: 065
  6. LOVAN [Concomitant]
     Active Substance: FLUOXETINE HYDROCHLORIDE
     Indication: DEPRESSION
     Dosage: 20 MG, QD
     Route: 065
     Dates: start: 20140725
  7. HEPARIN [Concomitant]
     Active Substance: HEPARIN SODIUM
     Indication: PROPHYLAXIS
     Dosage: UNK
     Route: 065
     Dates: start: 20180413, end: 20180420
  8. SWISSE WOMEN^S ULTIVITE MULTIVITAMIN MINERAL [Concomitant]
     Indication: PROPHYLAXIS
     Dosage: 1 DF, QD
     Route: 065
     Dates: start: 20161129

REACTIONS (52)
  - Head discomfort [Unknown]
  - Urinary tract infection bacterial [Recovered/Resolved]
  - Gingival hypertrophy [Unknown]
  - Aggression [Unknown]
  - Muscle spasms [Unknown]
  - Urinary tract infection [Unknown]
  - Facial paralysis [Unknown]
  - Hemiplegia [Recovering/Resolving]
  - Disturbance in attention [Unknown]
  - Feeling cold [Unknown]
  - Pyrexia [Unknown]
  - Confusional state [Unknown]
  - Focal dyscognitive seizures [Recovering/Resolving]
  - Seizure [Recovered/Resolved]
  - Partial seizures [Not Recovered/Not Resolved]
  - Urinary tract infection [Recovered/Resolved]
  - Dry mouth [Recovered/Resolved]
  - Cognitive disorder [Unknown]
  - Seizure [Recovered/Resolved]
  - Muscle rigidity [Unknown]
  - Hemiparesis [Recovering/Resolving]
  - Back pain [Unknown]
  - Depression [Unknown]
  - Vitamin D deficiency [Unknown]
  - Loss of consciousness [Recovering/Resolving]
  - Generalised tonic-clonic seizure [Recovered/Resolved with Sequelae]
  - Speech disorder [Recovering/Resolving]
  - Dysphagia [Recovered/Resolved]
  - Hypotension [Unknown]
  - Liver disorder [Unknown]
  - Agitation [Unknown]
  - Respiratory acidosis [Unknown]
  - Cerebral arteriovenous malformation haemorrhagic [Recovering/Resolving]
  - Seizure [Recovered/Resolved with Sequelae]
  - Amnesia [Recovered/Resolved with Sequelae]
  - Status epilepticus [Recovered/Resolved with Sequelae]
  - Paraesthesia [Unknown]
  - Behaviour disorder [Unknown]
  - Extensor plantar response [Recovering/Resolving]
  - Aphasia [Recovering/Resolving]
  - Muscle twitching [Recovering/Resolving]
  - Seizure [Recovered/Resolved]
  - Constipation [Unknown]
  - Ataxia [Unknown]
  - Fall [Unknown]
  - Vomiting [Unknown]
  - Disorientation [Unknown]
  - Dyskinesia [Unknown]
  - Seizure [Recovered/Resolved with Sequelae]
  - Mood altered [Unknown]
  - Urinary incontinence [Recovered/Resolved]
  - Tremor [Unknown]

NARRATIVE: CASE EVENT DATE: 20160914
